FAERS Safety Report 13278344 (Version 1)
Quarter: 2017Q1

REPORT INFORMATION
  Report Type: Spontaneous
  Country: US (occurrence: US)
  Receive Date: 20170228
  Receipt Date: 20170228
  Transmission Date: 20170428
  Serious: No
  Sender: FDA-Public Use
  Company Number: US-IMPAX LABORATORIES, INC-2015-IPXL-02507

PATIENT
  Age: 79 Year
  Sex: Male
  Weight: 79 kg

DRUGS (3)
  1. NITROFURANTOIN, MACROCRYSTALLINE IR [Suspect]
     Active Substance: NITROFURANTOIN
     Indication: URINARY TRACT INFECTION
     Dosage: 200 MILLIGRAM DAILY;
     Route: 065
     Dates: start: 20151120, end: 201511
  2. CEPHALEXIN. [Suspect]
     Active Substance: CEPHALEXIN
     Indication: URINARY TRACT INFECTION
     Dosage: 1000 MILLIGRAM DAILY; ONE IN THE MORNING AND ONE AT NIGHT
     Route: 065
     Dates: start: 20151124, end: 20151205
  3. LEVOFLOXACIN. [Suspect]
     Active Substance: LEVOFLOXACIN
     Indication: URINARY TRACT INFECTION
     Dosage: 750 MILLIGRAM DAILY;
     Route: 065
     Dates: start: 20151116, end: 20151120

REACTIONS (5)
  - Urinary tract infection [Unknown]
  - Malaise [Not Recovered/Not Resolved]
  - Abdominal pain upper [Unknown]
  - Stomach mass [Unknown]
  - Headache [Unknown]

NARRATIVE: CASE EVENT DATE: 201511
